FAERS Safety Report 4365962-X (Version None)
Quarter: 2004Q2

REPORT INFORMATION
  Report Type: 
  Country: None (occurrence: None)
  Receive Date: 20040526
  Receipt Date: 20040526
  Transmission Date: 20050107
  Serious: Yes (Other)
  Sender: FDA-Public Use
  Company Number: None

PATIENT
  Age: 25 Year
  Sex: Female
  Weight: 47.6277 kg

DRUGS (1)
  1. ZICAM NO-DRIP NASAL GEL ZINCUM GLUCONICUM 2X ZICAM/MATRIXX INITIATIVES [Suspect]
     Indication: NASOPHARYNGITIS
     Dosage: ONE DOSE EVERY FOUR NASAL
     Route: 045
     Dates: start: 20040310, end: 20040316

REACTIONS (2)
  - AGEUSIA [None]
  - ANOSMIA [None]
